FAERS Safety Report 15531122 (Version 1)
Quarter: 2018Q4

REPORT INFORMATION
  Report Type: Spontaneous
  Country: US (occurrence: US)
  Receive Date: 20181019
  Receipt Date: 20181019
  Transmission Date: 20190205
  Serious: Yes (Death)
  Sender: FDA-Public Use
  Company Number: PHEH2018US044215

PATIENT
  Age: 31 Year
  Sex: Female

DRUGS (1)
  1. VOTRIENT [Suspect]
     Active Substance: PAZOPANIB HYDROCHLORIDE
     Indication: LUNG CARCINOMA CELL TYPE UNSPECIFIED STAGE 0
     Dosage: 800 MG, QD
     Route: 048
     Dates: start: 20180818

REACTIONS (1)
  - Death [Fatal]

NARRATIVE: CASE EVENT DATE: 20181002
